FAERS Safety Report 24372251 (Version 3)
Quarter: 2024Q4

REPORT INFORMATION
  Report Type: Spontaneous
  Country: AR (occurrence: AR)
  Receive Date: 20240927
  Receipt Date: 20241104
  Transmission Date: 20250115
  Serious: No
  Sender: PFIZER
  Company Number: AR-PFIZER INC-202400258930

PATIENT
  Age: 6 Year
  Sex: Female

DRUGS (1)
  1. GENOTROPIN [Suspect]
     Active Substance: SOMATROPIN
     Indication: Foetal growth restriction
     Dosage: 0.8 MG, DAILY
     Dates: start: 20240206

REACTIONS (2)
  - Device mechanical issue [Unknown]
  - Expired device used [Unknown]
